FAERS Safety Report 25525913 (Version 1)
Quarter: 2025Q3

REPORT INFORMATION
  Report Type: Spontaneous
  Country: US (occurrence: None)
  Receive Date: 20250707
  Receipt Date: 20250707
  Transmission Date: 20251020
  Serious: No
  Sender: FDA-CTU
  Company Number: None

PATIENT
  Age: 72 Year
  Sex: Female
  Weight: 56.25 kg

DRUGS (5)
  1. SUFLAVE [Suspect]
     Active Substance: MAGNESIUM SULFATE ANHYDROUS\POLYETHYLENE GLYCOL 3350\POTASSIUM CHLORIDE\SODIUM CHLORIDE\SODIUM SULFA
     Indication: Bowel preparation
     Route: 048
     Dates: start: 20250530, end: 20250530
  2. LEVOTHYROXINE [Concomitant]
     Active Substance: LEVOTHYROXINE
  3. Lyothyronine [Concomitant]
  4. PROGESTERONE [Concomitant]
     Active Substance: PROGESTERONE
  5. Estrogen patch and cream [Concomitant]

REACTIONS (2)
  - Rash pruritic [None]
  - Urticaria [None]

NARRATIVE: CASE EVENT DATE: 20250530
